FAERS Safety Report 14069421 (Version 3)
Quarter: 2018Q2

REPORT INFORMATION
  Report Type: Report from Study
  Country: US (occurrence: US)
  Receive Date: 20171010
  Receipt Date: 20180601
  Transmission Date: 20180711
  Serious: Yes (Hospitalization, Other)
  Sender: FDA-Public Use
  Company Number: US-SA-2017SA193975

PATIENT
  Age: 71 Year
  Sex: Male
  Weight: 79.37 kg

DRUGS (5)
  1. ALIROCUMAB PREFILLED PEN [Suspect]
     Active Substance: ALIROCUMAB
     Indication: HEART VALVE CALCIFICATION
  2. ASPIRIN (E.C.) [Concomitant]
     Active Substance: ASPIRIN
     Dosage: UNK UNK, QD
  3. ALIROCUMAB [Suspect]
     Active Substance: ALIROCUMAB
     Indication: BLOOD CHOLESTEROL INCREASED
     Dosage: 150 MG,QOW
     Route: 058
     Dates: start: 201708
  4. ALIROCUMAB [Suspect]
     Active Substance: ALIROCUMAB
     Indication: HEART VALVE CALCIFICATION
     Dosage: 150 MG,QOW
     Route: 058
     Dates: start: 201803
  5. ALIROCUMAB PREFILLED PEN [Suspect]
     Active Substance: ALIROCUMAB
     Indication: BLOOD CHOLESTEROL INCREASED

REACTIONS (23)
  - Condition aggravated [Unknown]
  - Spinal column injury [Not Recovered/Not Resolved]
  - Influenza [Not Recovered/Not Resolved]
  - Injection site haemorrhage [Unknown]
  - Aortic disorder [Unknown]
  - Neck pain [Unknown]
  - Injection site bruising [Unknown]
  - Hernia [Not Recovered/Not Resolved]
  - Diarrhoea [Not Recovered/Not Resolved]
  - Device use issue [Unknown]
  - Medial tibial stress syndrome [Unknown]
  - Pulmonary congestion [Not Recovered/Not Resolved]
  - Musculoskeletal pain [Unknown]
  - Muscle spasms [Not Recovered/Not Resolved]
  - Myalgia [Not Recovered/Not Resolved]
  - Arthralgia [Unknown]
  - Chest pain [Unknown]
  - Neck injury [Unknown]
  - Irritability [Unknown]
  - Pollakiuria [Not Recovered/Not Resolved]
  - Rhinorrhoea [Not Recovered/Not Resolved]
  - Blood cholesterol [Not Recovered/Not Resolved]
  - Cough [Not Recovered/Not Resolved]

NARRATIVE: CASE EVENT DATE: 201709
